FAERS Safety Report 15362633 (Version 1)
Quarter: 2018Q3

REPORT INFORMATION
  Report Type: Spontaneous
  Country: US (occurrence: US)
  Receive Date: 20180907
  Receipt Date: 20180907
  Transmission Date: 20181010
  Serious: Yes (Hospitalization)
  Sender: FDA-Public Use
  Company Number: US-SA-2018SA242872

PATIENT
  Age: 67 Year
  Sex: Male

DRUGS (2)
  1. TRESIBA [Concomitant]
     Active Substance: INSULIN DEGLUDEC
     Indication: DIABETES MELLITUS
     Dosage: UNK
  2. TOUJEO [Suspect]
     Active Substance: INSULIN GLARGINE
     Indication: TYPE 2 DIABETES MELLITUS
     Dosage: 54 IU, BID
     Route: 065
     Dates: start: 20180717

REACTIONS (3)
  - Seizure [Unknown]
  - Hyperglycaemia [Unknown]
  - Intracranial mass [Unknown]

NARRATIVE: CASE EVENT DATE: 20180731
